FAERS Safety Report 8295038-0 (Version None)
Quarter: 2012Q2

REPORT INFORMATION
  Report Type: 
  Country: None (occurrence: None)
  Receive Date: 20120418
  Receipt Date: 20120412
  Transmission Date: 20120825
  Serious: Yes (Hospitalization, Other)
  Sender: FDA-Public Use
  Company Number: GB-ELI_LILLY_AND_COMPANY-GB201204003710

PATIENT
  Age: 58 Year
  Sex: Male

DRUGS (9)
  1. PRASUGREL HYDROCHLORIDE [Suspect]
     Dosage: 10 MG, UNKNOWN
     Route: 048
  2. ALBUTEROL [Concomitant]
  3. ASPIRIN [Concomitant]
     Dosage: 75 MG, UNKNOWN
     Route: 048
  4. ATORVASTATIN [Concomitant]
  5. TIOTROPIUM BROMIDE [Concomitant]
  6. RAMIPRIL [Concomitant]
  7. BISOPROLOL FUMARATE [Concomitant]
  8. FLUTICASONE PROPIONATE/SALMETEROL [Concomitant]
     Dosage: 125 UG, UNKNOWN
  9. SULFASALAZINE [Concomitant]

REACTIONS (4)
  - DUODENAL ULCER [None]
  - GASTROINTESTINAL HAEMORRHAGE [None]
  - ABDOMINAL DISCOMFORT [None]
  - MELAENA [None]
